FAERS Safety Report 9750873 (Version 1)
Quarter: 2013Q4

REPORT INFORMATION
  Report Type: Spontaneous
  Country: US (occurrence: US)
  Receive Date: 20131212
  Receipt Date: 20131212
  Transmission Date: 20140711
  Serious: Yes (Other)
  Sender: FDA-Public Use
  Company Number: US-GE HEALTHCARE MEDICAL DIAGNOSTICS-OSCN-PR-1311S-0092

PATIENT
  Age: 69 Year
  Sex: Female

DRUGS (4)
  1. OMNISCAN [Suspect]
     Indication: HEADACHE
     Dates: start: 20061219, end: 20061219
  2. OMNISCAN [Suspect]
     Indication: VERTIGO
     Dates: start: 20040513, end: 20040513
  3. OMNISCAN [Suspect]
     Indication: RENAL MASS
     Dates: start: 20061109, end: 20061109
  4. GADOLINIUM (UNSPECIFIED) [Suspect]
     Indication: PRODUCT USED FOR UNKNOWN INDICATION
     Dates: start: 20061215, end: 20061215

REACTIONS (1)
  - Nephrogenic systemic fibrosis [Not Recovered/Not Resolved]
